FAERS Safety Report 5722941-5 (Version None)
Quarter: 2008Q2

REPORT INFORMATION
  Report Type: 
  Country: None (occurrence: None)
  Receive Date: 20080429
  Receipt Date: 20080429
  Transmission Date: 20081010
  Serious: Yes (Life-Threatening)
  Sender: FDA-Public Use
  Company Number: None

PATIENT
  Sex: Male
  Weight: 81.6475 kg

DRUGS (4)
  1. LOPRESSOR [Suspect]
  2. DILAUDID [Suspect]
  3. PHENERGAN [Concomitant]
  4. NARCAN [Suspect]

REACTIONS (5)
  - BLOOD PRESSURE DECREASED [None]
  - DYSPNOEA [None]
  - DYSTONIA [None]
  - ILL-DEFINED DISORDER [None]
  - MEDICATION ERROR [None]
